FAERS Safety Report 16192566 (Version 1)
Quarter: 2019Q2

REPORT INFORMATION
  Report Type: Spontaneous
  Country: US (occurrence: US)
  Receive Date: 20190412
  Receipt Date: 20190412
  Transmission Date: 20190711
  Serious: No
  Sender: FDA-Public Use
  Company Number: US-SA-2019SA102144

PATIENT
  Age: 52 Year
  Sex: Male

DRUGS (3)
  1. LANTUS [Suspect]
     Active Substance: INSULIN GLARGINE
     Dosage: UNK
     Route: 065
  2. VICTOZA [Suspect]
     Active Substance: LIRAGLUTIDE
     Dosage: UNK
     Route: 065
  3. NOVOLIN N [Suspect]
     Active Substance: INSULIN HUMAN
     Dosage: UNK
     Route: 065

REACTIONS (1)
  - Blood glucose increased [Recovered/Resolved]
